FAERS Safety Report 5231989-9 (Version None)
Quarter: 2007Q1

REPORT INFORMATION
  Report Type: 
  Country: None (occurrence: None)
  Receive Date: 20070206
  Receipt Date: 20070125
  Transmission Date: 20070707
  Serious: Yes (Death, Life-Threatening, Hospitalization)
  Sender: FDA-Public Use
  Company Number: JP-PFIZER INC-2007008229

PATIENT
  Sex: Male
  Weight: 47 kg

DRUGS (9)
  1. SULPERAZON [Suspect]
     Indication: RESPIRATORY TRACT INFECTION
     Route: 042
     Dates: start: 20060617, end: 20070124
  2. MICAFUNGIN [Suspect]
     Indication: BRONCHOPULMONARY ASPERGILLOSIS
     Route: 042
     Dates: start: 20070116, end: 20070124
  3. CLARITHROMYCIN [Concomitant]
     Route: 048
  4. MUCOSOLVAN [Concomitant]
     Route: 048
     Dates: start: 19950131
  5. NAUZELIN [Concomitant]
     Route: 048
  6. MUCODYNE [Concomitant]
     Route: 048
     Dates: start: 19950131
  7. TAKA-DIASTASE [Concomitant]
     Route: 048
     Dates: start: 20060527
  8. SELTOUCH [Concomitant]
     Route: 062
     Dates: start: 20060527
  9. OMEPRAL [Concomitant]

REACTIONS (4)
  - HAEMATURIA [None]
  - HAEMOPTYSIS [None]
  - LOSS OF CONSCIOUSNESS [None]
  - SHOCK [None]
